FAERS Safety Report 21244353 (Version 1)
Quarter: 2022Q3

REPORT INFORMATION
  Report Type: Spontaneous
  Country: US (occurrence: None)
  Receive Date: 20220822
  Receipt Date: 20220822
  Transmission Date: 20221026
  Serious: No
  Sender: FDA-Public Use
  Company Number: None

PATIENT
  Sex: Male

DRUGS (1)
  1. INLYTA [Suspect]
     Active Substance: AXITINIB
     Indication: Retroperitoneal cancer
     Dosage: TAKE 2 TABLETS (2 MG) BY MOUTH IN THE MORNING AND 1 TABLET (1 MG) IN THE EVENING
     Route: 048
     Dates: start: 20220610

REACTIONS (7)
  - Fatigue [None]
  - Asthenia [None]
  - Decreased appetite [None]
  - Hyperkeratosis [None]
  - Nausea [None]
  - Pyrexia [None]
  - Hypertension [None]
